FAERS Safety Report 16469333 (Version 3)
Quarter: 2019Q4

REPORT INFORMATION
  Report Type: Spontaneous
  Country: IT (occurrence: IT)
  Receive Date: 20190624
  Receipt Date: 20191106
  Transmission Date: 20200122
  Serious: Yes (Life-Threatening)
  Sender: FDA-Public Use
  Company Number: IT-TEVA-2019-IT-1067455

PATIENT
  Age: 69 Year
  Sex: Male
  Weight: 96 kg

DRUGS (4)
  1. METFORMIN [Suspect]
     Active Substance: METFORMIN HYDROCHLORIDE
     Indication: TYPE 2 DIABETES MELLITUS
     Dosage: 3000 MILLIGRAM FOR EVERY 1 DAYS
     Route: 048
  2. AUGMENTIN [Concomitant]
     Active Substance: AMOXICILLIN\CLAVULANATE POTASSIUM
     Indication: PHARYNGITIS
     Dosage: 3000MILLIGRAM FOR EVERY 1 DAYS
     Route: 048
     Dates: start: 20190528, end: 20190531
  3. COLCHICINE. [Suspect]
     Active Substance: COLCHICINE
     Indication: GOUTY ARTHRITIS
     Dosage: 3 MILLIGRAM FOR EVERY 1 DAYS
     Route: 048
     Dates: start: 20190527, end: 20190602
  4. CEFTRIAXONE. [Concomitant]
     Active Substance: CEFTRIAXONE
     Indication: PHARYNGITIS
     Dosage: 1000MILLIGRAM FOR EVERY 1 DAYS
     Route: 030
     Dates: start: 20190531, end: 20190602

REACTIONS (4)
  - Acute kidney injury [Unknown]
  - Lactic acidosis [Unknown]
  - Toxicity to various agents [Unknown]
  - Diarrhoea [Unknown]

NARRATIVE: CASE EVENT DATE: 20190602
